FAERS Safety Report 12314994 (Version 1)
Quarter: 2016Q2

REPORT INFORMATION
  Report Type: Spontaneous
  Country: US (occurrence: US)
  Receive Date: 20160428
  Receipt Date: 20160428
  Transmission Date: 20160815
  Serious: No
  Sender: FDA-Public Use
  Company Number: US-TEVA-655279USA

PATIENT
  Sex: Female

DRUGS (2)
  1. NUVIGIL [Suspect]
     Active Substance: ARMODAFINIL
  2. NUVIGIL [Suspect]
     Active Substance: ARMODAFINIL

REACTIONS (3)
  - Underdose [Unknown]
  - Intentional product use issue [Unknown]
  - Restlessness [Unknown]
